FAERS Safety Report 14854609 (Version 2)
Quarter: 2018Q2

REPORT INFORMATION
  Report Type: Spontaneous
  Country: US (occurrence: US)
  Receive Date: 20180507
  Receipt Date: 20180511
  Transmission Date: 20180711
  Serious: Yes (Other)
  Sender: FDA-Public Use
  Company Number: US-TEVA-2018-US-890296

PATIENT
  Age: 35 Year
  Sex: Male

DRUGS (6)
  1. UREA LOTION [Concomitant]
     Dosage: FORMULATION: LOTION
     Route: 065
  2. ACITRETIN. [Suspect]
     Active Substance: ACITRETIN
     Indication: ICHTHYOSIS
     Route: 048
     Dates: end: 20131021
  3. ACITRETIN. [Suspect]
     Active Substance: ACITRETIN
     Indication: ICHTHYOSIS
     Dosage: 20 TO 40 MG DAILY; LATER DOSE ADJUSTED TO 40 MG DAILY
     Route: 048
     Dates: start: 20131021, end: 20150318
  4. ACITRETIN. [Suspect]
     Active Substance: ACITRETIN
     Indication: ICHTHYOSIS
     Dosage: CHANGED TO AN UNSPECIFIED DOSE IN THE RANGE OF 20 TO 40 MG DAILY
     Route: 048
     Dates: start: 20131021
  5. FENOFIBRATE. [Concomitant]
     Active Substance: FENOFIBRATE
     Route: 065
     Dates: start: 20131021
  6. ATORVASTATIN [Concomitant]
     Active Substance: ATORVASTATIN
     Route: 065

REACTIONS (1)
  - Hyperlipidaemia [Not Recovered/Not Resolved]
